FAERS Safety Report 4351985-3 (Version None)
Quarter: 2004Q2

REPORT INFORMATION
  Report Type: 
  Country: None (occurrence: None)
  Receive Date: 20040429
  Receipt Date: 20040212
  Transmission Date: 20050107
  Serious: No
  Sender: FDA-Public Use
  Company Number: 2004-113195-NL

PATIENT
  Age: 39 Year
  Sex: Female
  Weight: 51 kg

DRUGS (4)
  1. NUVARING [Suspect]
     Indication: CONTRACEPTION
     Dosage: DF DAILY VAGINAL
     Route: 067
     Dates: start: 20031215
  2. NUVARING [Suspect]
     Indication: HORMONE LEVEL ABNORMAL
     Dosage: DF DAILY VAGINAL
     Route: 067
     Dates: start: 20031215
  3. NUVARING [Suspect]
     Indication: MENSTRUATION IRREGULAR
     Dosage: DF DAILY VAGINAL
     Route: 067
     Dates: start: 20031215
  4. ALLEGRA [Concomitant]

REACTIONS (3)
  - BACK PAIN [None]
  - HEADACHE [None]
  - METRORRHAGIA [None]
